FAERS Safety Report 24111145 (Version 1)
Quarter: 2024Q3

REPORT INFORMATION
  Report Type: Spontaneous
  Country: US (occurrence: None)
  Receive Date: 20240718
  Receipt Date: 20240718
  Transmission Date: 20241016
  Serious: Yes (Hospitalization)
  Sender: Public
  Company Number: None

PATIENT
  Sex: Female

DRUGS (11)
  1. LENALIDOMIDE [Suspect]
     Active Substance: LENALIDOMIDE
     Indication: Plasma cell myeloma
     Dosage: OTHER QUANTITY : TAKE 1 CAPSULE;?OTHER FREQUENCY : DAILY FOR 14 DAYS ON/7DAYS OFF FOR A 21 DAY CYCLE
     Route: 048
     Dates: start: 20240628
  2. AMLODIPINE [Concomitant]
     Active Substance: AMLODIPINE BESYLATE
  3. AMOXICILLIN [Concomitant]
     Active Substance: AMOXICILLIN
  4. ASPIRIN LOW TAB [Concomitant]
  5. CALCIUM 500 l [Concomitant]
  6. CHLORTHALIDONE [Concomitant]
     Active Substance: CHLORTHALIDONE
  7. COZAAR [Concomitant]
     Active Substance: LOSARTAN POTASSIUM
  8. EZETIMIBE [Concomitant]
     Active Substance: EZETIMIBE
  9. ACETAMINOPHEN\HYDROCODONE [Concomitant]
     Active Substance: ACETAMINOPHEN\HYDROCODONE
  10. MAGNESIUM [Concomitant]
     Active Substance: MAGNESIUM
  11. METHOCARBAMOL [Concomitant]
     Active Substance: METHOCARBAMOL

REACTIONS (1)
  - Pneumonia [None]
